FAERS Safety Report 24437850 (Version 1)
Quarter: 2024Q4

REPORT INFORMATION
  Report Type: Spontaneous
  Country: JP (occurrence: JP)
  Receive Date: 20241015
  Receipt Date: 20241015
  Transmission Date: 20250115
  Serious: No
  Sender: ELI LILLY AND COMPANY
  Company Number: JP-NShinyaku-EVA202406768ZZLILLY

PATIENT
  Sex: Male

DRUGS (5)
  1. TADALAFIL [Suspect]
     Active Substance: TADALAFIL
     Indication: Benign prostatic hyperplasia
     Dosage: 5 MG, DAILY
     Route: 048
     Dates: start: 20221215, end: 20240906
  2. IRBESARTAN [Concomitant]
     Active Substance: IRBESARTAN
     Dosage: UNKNOWN
     Route: 048
  3. VONOPRAZAN FUMARATE [Concomitant]
     Active Substance: VONOPRAZAN FUMARATE
     Dosage: UNKNOWN
     Route: 048
  4. XARELTO [Concomitant]
     Active Substance: RIVAROXABAN
     Dosage: UNKNOWN
     Route: 048
  5. METHYLCOBALAMIN [Concomitant]
     Active Substance: METHYLCOBALAMIN
     Dosage: UNKNOWN
     Route: 048

REACTIONS (1)
  - Swelling of eyelid [Recovering/Resolving]

NARRATIVE: CASE EVENT DATE: 20240808
